FAERS Safety Report 5720680-8 (Version None)
Quarter: 2008Q2

REPORT INFORMATION
  Report Type: 
  Country: None (occurrence: None)
  Receive Date: 20080429
  Receipt Date: 20080417
  Transmission Date: 20081010
  Serious: Yes (Hospitalization)
  Sender: FDA-Public Use
  Company Number: FR-WYE-G01426508

PATIENT
  Sex: Female

DRUGS (8)
  1. EFFEXOR [Suspect]
     Route: 048
     Dates: end: 20071122
  2. STILNOX [Suspect]
     Dates: end: 20071122
  3. SERETIDE [Concomitant]
     Route: 055
  4. LASILIX [Concomitant]
     Route: 048
  5. TRIATEC [Concomitant]
     Route: 048
  6. ALDACTONE [Concomitant]
     Route: 048
  7. SERESTA [Suspect]
     Route: 048
     Dates: end: 20071122
  8. LOXEN [Concomitant]
     Route: 048

REACTIONS (3)
  - BALANCE DISORDER [None]
  - OVERDOSE [None]
  - PSYCHOMOTOR RETARDATION [None]
